FAERS Safety Report 8437050-4 (Version None)
Quarter: 2012Q2

REPORT INFORMATION
  Report Type: 
  Country: None (occurrence: None)
  Receive Date: 20120614
  Receipt Date: 20120607
  Transmission Date: 20120825
  Serious: Yes (Disabling)
  Sender: FDA-Public Use
  Company Number: US-TEVA-342257USA

PATIENT
  Sex: Male

DRUGS (6)
  1. POLYCARBOPHIL CALCIUM [Suspect]
     Indication: CONSTIPATION
  2. ROPINIROLE HYDROCHLORIDE [Suspect]
     Indication: PARKINSON'S DISEASE
     Dosage: 8 MILLIGRAM;
     Route: 048
     Dates: start: 20120501
  3. ROPINIROLE [Concomitant]
  4. LISINOPRIL [Concomitant]
  5. LEVOTHYROXINE SODIUM [Concomitant]
  6. AZILECT [Suspect]
     Indication: PARKINSON'S DISEASE
     Route: 048
     Dates: start: 20101001

REACTIONS (4)
  - MEDICATION RESIDUE [None]
  - CONFUSIONAL STATE [None]
  - INSOMNIA [None]
  - BALANCE DISORDER [None]
